FAERS Safety Report 6868490-2 (Version None)
Quarter: 2010Q3

REPORT INFORMATION
  Report Type: 
  Country: None (occurrence: None)
  Receive Date: 20100722
  Receipt Date: 20080604
  Transmission Date: 20110219
  Serious: No
  Sender: FDA-Public Use
  Company Number: US-PFIZER INC-2008048200

PATIENT
  Sex: Male
  Weight: 101.8 kg

DRUGS (2)
  1. CHANTIX [Suspect]
     Indication: SMOKING CESSATION THERAPY
     Dates: start: 20080501
  2. WARFARIN SODIUM [Suspect]

REACTIONS (2)
  - BLOOD DISORDER [None]
  - DRUG INEFFECTIVE [None]
